FAERS Safety Report 22928899 (Version 8)
Quarter: 2024Q1

REPORT INFORMATION
  Report Type: Report from Study
  Country: US (occurrence: US)
  Receive Date: 20230911
  Receipt Date: 20240222
  Transmission Date: 20240409
  Serious: Yes (Hospitalization, Other)
  Sender: FDA-Public Use
  Company Number: US-002147023-NVSC2022US151233

PATIENT
  Age: 64 Year
  Sex: Female
  Weight: 58.05 kg

DRUGS (18)
  1. ADEMPAS [Suspect]
     Active Substance: RIOCIGUAT
     Indication: Product used for unknown indication
     Dosage: UNK
     Route: 065
  2. TADALAFIL [Suspect]
     Active Substance: TADALAFIL
     Indication: Product used for unknown indication
     Dosage: UNK
     Route: 065
  3. TREPROSTINIL [Suspect]
     Active Substance: TREPROSTINIL
     Dosage: 17.5 NG/KG/ MI N, CONT
     Route: 058
     Dates: start: 20220622
  4. TREPROSTINIL [Suspect]
     Active Substance: TREPROSTINIL
     Dosage: 19.5 NG/KG/ MIN, CONT
     Route: 058
     Dates: start: 20220622
  5. TREPROSTINIL [Suspect]
     Active Substance: TREPROSTINIL
     Dosage: 24 NG/KG/MIN, CONTINUOUS
     Route: 058
     Dates: start: 20220622
  6. TREPROSTINIL [Suspect]
     Active Substance: TREPROSTINIL
     Dosage: 9.5 NG/KG/MIN, CONT
     Route: 058
  7. TREPROSTINIL [Suspect]
     Active Substance: TREPROSTINIL
     Indication: Pulmonary arterial hypertension
     Dosage: 1.5 NG/KG/MIN, CONT
     Route: 058
     Dates: start: 20220622
  8. TREPROSTINIL [Suspect]
     Active Substance: TREPROSTINIL
     Dosage: 20 NG/KG/MIN, CONT
     Route: 058
  9. TREPROSTINIL [Suspect]
     Active Substance: TREPROSTINIL
     Dosage: 22 NG/KG/MIN, CONT
     Route: 058
  10. TREPROSTINIL [Suspect]
     Active Substance: TREPROSTINIL
     Dosage: 22 NG/KG/MIN, CONT
     Route: 058
  11. TREPROSTINIL [Suspect]
     Active Substance: TREPROSTINIL
     Dosage: 23.5 NG/KG/ MI N
     Route: 058
     Dates: start: 20220622
  12. TREPROSTINIL [Suspect]
     Active Substance: TREPROSTINIL
     Dosage: UNK, CONT
     Route: 058
  13. ADEMPAS [Concomitant]
     Active Substance: RIOCIGUAT
     Dosage: 2 MG
     Route: 065
  14. ADEMPAS [Concomitant]
     Active Substance: RIOCIGUAT
     Indication: Product used for unknown indication
     Dosage: UNK UNK, TID (NOT TAKING AS PRESCRIBED IN HOSPITAL AND JUST STARTED BACKUP AT THREE TIMES A DAY)
     Route: 065
  15. AMBRISENTAN [Concomitant]
     Active Substance: AMBRISENTAN
     Indication: Product used for unknown indication
     Dosage: UNK
     Route: 065
  16. AMLODIPINE [Concomitant]
     Active Substance: AMLODIPINE BESYLATE
     Indication: Product used for unknown indication
     Dosage: UNK
     Route: 065
  17. SILDENAFIL CITRATE [Concomitant]
     Active Substance: SILDENAFIL CITRATE
     Indication: Product used for unknown indication
     Dosage: UNK
     Route: 065
  18. ZENPEP [Concomitant]
     Active Substance: PANCRELIPASE AMYLASE\PANCRELIPASE LIPASE\PANCRELIPASE PROTEASE
     Indication: Pancreatic disorder
     Dosage: UNK
     Route: 065

REACTIONS (71)
  - Pneumothorax [Unknown]
  - Upper airway obstruction [Unknown]
  - Urinary retention [Unknown]
  - Dyspnoea [Not Recovered/Not Resolved]
  - Dyspnoea [Unknown]
  - Illness [Unknown]
  - Productive cough [Unknown]
  - Urinary tract infection [Unknown]
  - Oedema peripheral [Unknown]
  - Neoplasm malignant [Unknown]
  - Scleroderma [Unknown]
  - Haemorrhage [Unknown]
  - Functional gastrointestinal disorder [Unknown]
  - Diarrhoea haemorrhagic [Unknown]
  - Pulmonary oedema [Unknown]
  - Pulmonary hypertension [Unknown]
  - Urinary retention [Unknown]
  - Catheter site swelling [Unknown]
  - Catheter site erythema [Unknown]
  - Catheter site pain [Unknown]
  - Feeling cold [Unknown]
  - Migraine [Unknown]
  - Feeding disorder [Unknown]
  - SARS-CoV-2 test positive [Recovered/Resolved]
  - Malaise [Unknown]
  - Pyrexia [Unknown]
  - Feeling abnormal [Unknown]
  - Gingival bleeding [Unknown]
  - Illness [Unknown]
  - Eye disorder [Unknown]
  - Chalazion [Unknown]
  - Visual impairment [Unknown]
  - Thyroid disorder [Unknown]
  - Flushing [Unknown]
  - Blood pressure abnormal [Unknown]
  - Cough [Unknown]
  - Dissociation [Unknown]
  - Restless legs syndrome [Unknown]
  - Heart rate decreased [Unknown]
  - Drug intolerance [Unknown]
  - Syringe issue [Unknown]
  - Tachycardia [Unknown]
  - Oxygen saturation decreased [Unknown]
  - Cystic lung disease [Unknown]
  - Productive cough [Unknown]
  - Bronchitis [Unknown]
  - Sputum discoloured [Unknown]
  - Joint swelling [Unknown]
  - Abdominal discomfort [Unknown]
  - Peripheral swelling [Unknown]
  - Fluid retention [Unknown]
  - Dyspnoea [Unknown]
  - Asthenia [Unknown]
  - Dizziness [Unknown]
  - Hypotension [Unknown]
  - Abdominal pain upper [Unknown]
  - Headache [Not Recovered/Not Resolved]
  - Pain in extremity [Recovered/Resolved]
  - Vomiting [Unknown]
  - Diarrhoea [Not Recovered/Not Resolved]
  - Nausea [Unknown]
  - Infusion site haemorrhage [Unknown]
  - Infusion site swelling [Unknown]
  - Injection site pain [Not Recovered/Not Resolved]
  - Infusion site erythema [Unknown]
  - Infusion site bruising [Unknown]
  - Fatigue [Unknown]
  - Oedema peripheral [Unknown]
  - Arthralgia [Unknown]
  - Pain [Unknown]
  - Hernia [Unknown]

NARRATIVE: CASE EVENT DATE: 20220802
